FAERS Safety Report 6825015-5 (Version None)
Quarter: 2010Q3

REPORT INFORMATION
  Report Type: 
  Country: None (occurrence: None)
  Receive Date: 20100708
  Receipt Date: 20070108
  Transmission Date: 20110219
  Serious: No
  Sender: FDA-Public Use
  Company Number: US-PFIZER INC-2007002763

PATIENT
  Sex: Male
  Weight: 77.11 kg

DRUGS (4)
  1. CHANTIX [Suspect]
     Indication: SMOKING CESSATION THERAPY
     Dates: start: 20061230, end: 20070105
  2. DOXYCYCLINE [Concomitant]
     Indication: LYME DISEASE
  3. CLARITHROMYCIN [Concomitant]
     Indication: LYME DISEASE
  4. HERBAL PREPARATION [Concomitant]

REACTIONS (3)
  - ABDOMINAL PAIN [None]
  - INSOMNIA [None]
  - NIGHTMARE [None]
